FAERS Safety Report 16010043 (Version 1)
Quarter: 2019Q1

REPORT INFORMATION
  Report Type: Spontaneous
  Country: US (occurrence: US)
  Receive Date: 20190225
  Receipt Date: 20190225
  Transmission Date: 20190418
  Serious: Yes (Hospitalization, Other)
  Sender: FDA-Public Use
  Company Number: PHHY2019US041287

PATIENT
  Age: 13 Year
  Sex: Male

DRUGS (1)
  1. CARBAMAZEPINE. [Suspect]
     Active Substance: CARBAMAZEPINE
     Indication: BIPOLAR DISORDER
     Route: 065

REACTIONS (10)
  - Rash maculo-papular [Recovered/Resolved]
  - Chapped lips [Unknown]
  - Drug reaction with eosinophilia and systemic symptoms [Unknown]
  - Face oedema [Unknown]
  - Discomfort [Unknown]
  - Rash erythematous [Recovered/Resolved]
  - Lymphadenopathy [Unknown]
  - Dermatitis [Unknown]
  - Pruritus [Unknown]
  - Cellulitis staphylococcal [Unknown]
